FAERS Safety Report 10199530 (Version 1)
Quarter: 2014Q2

REPORT INFORMATION
  Report Type: Spontaneous
  Country: IT (occurrence: IT)
  Receive Date: 20140527
  Receipt Date: 20140527
  Transmission Date: 20141212
  Serious: Yes (Hospitalization)
  Sender: FDA-Public Use
  Company Number: IT-WATSON-2013-25186

PATIENT
  Age: 59 Year
  Sex: Male

DRUGS (1)
  1. CIPROFLOXACIN HYDROCHLORIDE [Suspect]
     Indication: ERYSIPELAS
     Dosage: 1500 MG, DAILY
     Route: 048
     Dates: start: 20130529, end: 20130606

REACTIONS (2)
  - Erythema [Unknown]
  - Pruritus [Unknown]
